FAERS Safety Report 18718499 (Version 1)
Quarter: 2021Q1

REPORT INFORMATION
  Report Type: Report from Study
  Country: MX (occurrence: MX)
  Receive Date: 20210108
  Receipt Date: 20210108
  Transmission Date: 20210419
  Serious: Yes (Other)
  Sender: FDA-Public Use
  Company Number: MX-TAKEDA-MX202011127

PATIENT
  Age: 4 Year
  Sex: Male
  Weight: 20 kg

DRUGS (5)
  1. SALBUTAMOL [Concomitant]
     Active Substance: ALBUTEROL
     Indication: MUSCLE SPASMS
     Dosage: UNK
     Route: 050
  2. IDURSULFASE [Suspect]
     Active Substance: IDURSULFASE
     Indication: MUCOPOLYSACCHARIDOSIS II
     Dosage: 1 DOSAGE FORM, 1X/WEEK
     Route: 042
     Dates: start: 201901
  3. IDURSULFASE [Suspect]
     Active Substance: IDURSULFASE
     Dosage: 2 VIALS (6MG/3ML), 1/WEEK
     Route: 042
     Dates: start: 201901
  4. IDURSULFASE [Suspect]
     Active Substance: IDURSULFASE
     Dosage: 1 DOSAGE FORM, 1X/WEEK
     Route: 042
     Dates: start: 20200317
  5. RISPERIDONE. [Concomitant]
     Active Substance: RISPERIDONE
     Indication: MUCOPOLYSACCHARIDOSIS II
     Dosage: 5 MILLILITER, QD
     Route: 065

REACTIONS (4)
  - Arthralgia [Not Recovered/Not Resolved]
  - Product dose omission issue [Not Recovered/Not Resolved]
  - Inappropriate schedule of product administration [Recovered/Resolved]
  - Apnoea [Not Recovered/Not Resolved]

NARRATIVE: CASE EVENT DATE: 20200320
